FAERS Safety Report 7467760-7 (Version None)
Quarter: 2011Q2

REPORT INFORMATION
  Report Type: 
  Country: None (occurrence: None)
  Receive Date: 20110505
  Receipt Date: 20110505
  Transmission Date: 20111010
  Serious: Yes (Death)
  Sender: FDA-Public Use
  Company Number: None

PATIENT
  Age: 18 Month
  Sex: Female
  Weight: 10.4327 kg

DRUGS (1)
  1. CONCENTRATED TYLENOL INFANT DROPS [Suspect]
     Indication: PYREXIA
     Dosage: 1.6M. ONCE
     Dates: start: 20100421, end: 20100421

REACTIONS (3)
  - PRODUCT QUALITY ISSUE [None]
  - PRODUCT COLOUR ISSUE [None]
  - SUDDEN DEATH [None]
